FAERS Safety Report 5925671-X (Version None)
Quarter: 2008Q4

REPORT INFORMATION
  Report Type: 
  Country: None (occurrence: None)
  Receive Date: 20081016
  Receipt Date: 20081010
  Transmission Date: 20090506
  Serious: Yes (Other)
  Sender: FDA-Public Use
  Company Number: GXKR2008DE09646

PATIENT

DRUGS (1)
  1. CIPROHEXAL (NGX) (CIPROFLOXACIN) FILM-COATED TABLET, 250MG [Suspect]
     Dosage: 250 MG, ORAL
     Route: 048

REACTIONS (1)
  - CEREBROVASCULAR ACCIDENT [None]
